FAERS Safety Report 19670723 (Version 5)
Quarter: 2021Q3

REPORT INFORMATION
  Report Type: Other
  Country: IT (occurrence: IT)
  Receive Date: 20210806
  Receipt Date: 20210927
  Transmission Date: 20211014
  Serious: Yes (Other)
  Sender: FDA-Public Use
  Company Number: IT-ROCHE-2816936

PATIENT
  Age: 62 Year
  Sex: Male

DRUGS (9)
  1. PREDNISONE. [Suspect]
     Active Substance: PREDNISONE
     Indication: PRODUCT USED FOR UNKNOWN INDICATION
     Dosage: 28 DAYS BETWEEN C1 AND C2, FROM C2 TO C6 EVERY 21 DAYS.
     Route: 065
     Dates: start: 20200806
  2. VINCRISTINE [Suspect]
     Active Substance: VINCRISTINE
     Indication: PRODUCT USED FOR UNKNOWN INDICATION
     Dosage: 28 DAYS BETWEEN C1 AND C2, FROM C2 TO C6 EVERY 21 DAYS.
     Route: 065
     Dates: start: 20200806
  3. DOXORUBICIN [Suspect]
     Active Substance: DOXORUBICIN
     Indication: PRODUCT USED FOR UNKNOWN INDICATION
     Dosage: 28 DAYS BETWEEN C1 AND C2, FROM C2 TO C6 EVERY 21 DAYS.
     Route: 065
     Dates: start: 20200806
  4. OBINUTUZUMAB. [Suspect]
     Active Substance: OBINUTUZUMAB
     Route: 042
     Dates: start: 20200806
  5. OBINUTUZUMAB. [Suspect]
     Active Substance: OBINUTUZUMAB
     Route: 065
  6. PREDNISONE. [Suspect]
     Active Substance: PREDNISONE
     Route: 065
     Dates: start: 20200809, end: 20200810
  7. PREDNISONE. [Suspect]
     Active Substance: PREDNISONE
     Route: 065
     Dates: start: 20200807, end: 20200808
  8. OBINUTUZUMAB. [Suspect]
     Active Substance: OBINUTUZUMAB
     Indication: FOLLICULAR LYMPHOMA
     Dosage: NUMBER OF CYCLES RECEIVED (AT STUDY ENTRY):3?INDUCTION PHASE: 1000 MILLIGRAM (MG) INTRAVENOUSLY (IV)
     Route: 042
     Dates: start: 20200813
  9. CYCLOPHOSPHAMIDE. [Suspect]
     Active Substance: CYCLOPHOSPHAMIDE
     Indication: PRODUCT USED FOR UNKNOWN INDICATION
     Dosage: 28 DAYS BETWEEN C1 AND C2, FROM C2 TO C6 EVERY 21 DAYS.
     Route: 065
     Dates: start: 20200806

REACTIONS (4)
  - Off label use [Unknown]
  - Neutropenia [Recovered/Resolved]
  - Neutropenia [Recovered/Resolved]
  - Off label use [Unknown]

NARRATIVE: CASE EVENT DATE: 20201009
